FAERS Safety Report 11219192 (Version 1)
Quarter: 2015Q2

REPORT INFORMATION
  Report Type: Spontaneous
  Country: FI (occurrence: FI)
  Receive Date: 20150625
  Receipt Date: 20150625
  Transmission Date: 20150821
  Serious: Yes (Other)
  Sender: FDA-Public Use
  Company Number: FI-EISAI MEDICAL RESEARCH-EC-2015-007787

PATIENT
  Sex: Male

DRUGS (3)
  1. ORFIRIL [Concomitant]
     Active Substance: VALPROIC ACID
     Indication: EPILEPSY
     Dosage: 600 MG
     Route: 048
  2. ZONEGRAN [Suspect]
     Active Substance: ZONISAMIDE
     Indication: EPILEPSY
     Route: 048
     Dates: start: 20150101, end: 2015
  3. ZONEGRAN [Suspect]
     Active Substance: ZONISAMIDE
     Route: 048
     Dates: start: 2015, end: 20150313

REACTIONS (7)
  - Irritability [Recovered/Resolved]
  - Off label use [Recovered/Resolved]
  - Anxiety [Recovered/Resolved]
  - Developmental delay [Unknown]
  - Poor quality sleep [Recovered/Resolved]
  - Abnormal behaviour [Recovered/Resolved]
  - Tearfulness [Recovered/Resolved]

NARRATIVE: CASE EVENT DATE: 2015
